FAERS Safety Report 10089831 (Version 1)
Quarter: 2014Q2

REPORT INFORMATION
  Report Type: Spontaneous
  Country: US (occurrence: US)
  Receive Date: 20140421
  Receipt Date: 20140421
  Transmission Date: 20141212
  Serious: Yes (Other)
  Sender: FDA-Public Use
  Company Number: US-AMGEN INC.-USASP2014027324

PATIENT
  Sex: Female

DRUGS (3)
  1. PROLIA [Suspect]
     Indication: OSTEOPOROSIS POSTMENOPAUSAL
     Dosage: UNK
     Route: 065
     Dates: start: 20131116
  2. VITAMIN D                          /00107901/ [Concomitant]
     Dosage: 50000 UNIT, QWK
  3. CALCIUM [Concomitant]
     Dosage: 600 MG, QD

REACTIONS (9)
  - Urinary tract infection [Not Recovered/Not Resolved]
  - Tooth disorder [Unknown]
  - Renal pain [Not Recovered/Not Resolved]
  - Blood urine present [Not Recovered/Not Resolved]
  - Dehydration [Unknown]
  - Urinary incontinence [Not Recovered/Not Resolved]
  - Pain [Unknown]
  - Diarrhoea [Recovered/Resolved]
  - Loose tooth [Unknown]
